FAERS Safety Report 8300620-8 (Version None)
Quarter: 2012Q2

REPORT INFORMATION
  Report Type: 
  Country: None (occurrence: None)
  Receive Date: 20120420
  Receipt Date: 20120410
  Transmission Date: 20120825
  Serious: Yes (Hospitalization, Other)
  Sender: FDA-Public Use
  Company Number: PHHY2012KR000652

PATIENT
  Sex: Male

DRUGS (5)
  1. ANTIFUNGALS [Concomitant]
  2. CYTOXAN [Concomitant]
  3. DANAZOL [Concomitant]
  4. ANTIBIOTICS [Concomitant]
  5. EXJADE [Suspect]
     Indication: MYELODYSPLASTIC SYNDROME
     Dosage: UNK UKN, UNK
     Route: 048
     Dates: start: 20091022, end: 20110901

REACTIONS (3)
  - HAEMOGLOBIN DECREASED [None]
  - NASOPHARYNGITIS [None]
  - PYREXIA [None]
